FAERS Safety Report 21837125 (Version 1)
Quarter: 2023Q1

REPORT INFORMATION
  Report Type: Spontaneous
  Country: US (occurrence: US)
  Receive Date: 20230109
  Receipt Date: 20230109
  Transmission Date: 20230418
  Serious: Yes (Hospitalization, Other)
  Sender: FDA-Public Use
  Company Number: US-MLMSERVICE-20221229-4010090-1

PATIENT
  Age: 66 Year
  Sex: Female

DRUGS (1)
  1. TACROLIMUS [Suspect]
     Active Substance: TACROLIMUS
     Indication: Immunosuppressant drug therapy
     Dosage: UNK

REACTIONS (4)
  - Cognitive disorder [Recovered/Resolved]
  - Psychotic disorder [Not Recovered/Not Resolved]
  - Herpes simplex encephalitis [Unknown]
  - Prophylaxis against transplant rejection [Unknown]
